FAERS Safety Report 16970235 (Version 1)
Quarter: 2019Q4

REPORT INFORMATION
  Report Type: Spontaneous
  Country: US (occurrence: US)
  Receive Date: 20190911
  Receipt Date: 20190911
  Transmission Date: 20200122
  Serious: No
  Sender: FDA-Public Use
  Company Number: None

PATIENT
  Age: 62 Year
  Sex: Female

DRUGS (1)
  1. ORENCIA [Suspect]
     Active Substance: ABATACEPT
     Indication: ARTHRITIS
     Route: 058
     Dates: start: 201907

REACTIONS (2)
  - Device dispensing error [None]
  - Fine motor skill dysfunction [None]

NARRATIVE: CASE EVENT DATE: 20190911
